FAERS Safety Report 9268935 (Version 1)
Quarter: 2013Q2

REPORT INFORMATION
  Report Type: Spontaneous
  Country: NL (occurrence: NL)
  Receive Date: 20130503
  Receipt Date: 20130503
  Transmission Date: 20140414
  Serious: Yes (Death)
  Sender: FDA-Public Use
  Company Number: NL-AMGEN-NLDSP2013030463

PATIENT
  Age: 70 Year
  Sex: Female

DRUGS (10)
  1. XGEVA [Suspect]
     Indication: PRODUCT USED FOR UNKNOWN INDICATION
     Dosage: UNK UNK, Q4WK
     Route: 058
     Dates: start: 20121207
  2. MOVICOLON [Concomitant]
  3. CALCICHEW D3 [Concomitant]
     Dosage: 500 MG, UNK
  4. PANTOPRAZOL [Concomitant]
     Dosage: 40 MG, UNK
  5. PARACETAMOL TEVA [Concomitant]
     Dosage: 1000 MG, UNK
  6. PREDNISOLON                        /00016201/ [Concomitant]
     Dosage: 5 MG, UNK
  7. MICROLAX                           /00285401/ [Concomitant]
  8. PRIMPERAN [Concomitant]
     Dosage: 20 MG, UNK
  9. PLAQUENIL                          /00072602/ [Concomitant]
     Dosage: 200 MG, UNK
  10. ALENDRONATE [Concomitant]
     Dosage: 70 MG, UNK

REACTIONS (1)
  - Death [Fatal]
